FAERS Safety Report 21859518 (Version 1)
Quarter: 2023Q1

REPORT INFORMATION
  Report Type: Spontaneous
  Country: TR (occurrence: TR)
  Receive Date: 20230113
  Receipt Date: 20230113
  Transmission Date: 20230418
  Serious: Yes (Other)
  Sender: FDA-Public Use
  Company Number: TR-MYLANLABS-2018292336

PATIENT
  Age: 17 Year
  Sex: Male

DRUGS (21)
  1. SERTRALINE [Suspect]
     Active Substance: SERTRALINE HYDROCHLORIDE
     Indication: Intellectual disability
     Dosage: 50 MG, QD, DAILY
     Route: 065
  2. HALOPERIDOL [Suspect]
     Active Substance: HALOPERIDOL
     Indication: Product used for unknown indication
     Dosage: 10 MILLIGRAM, QD(10 MG, DAILY)
     Route: 065
  3. HALOPERIDOL [Suspect]
     Active Substance: HALOPERIDOL
     Indication: Intellectual disability
  4. RISPERIDONE [Suspect]
     Active Substance: RISPERIDONE
     Indication: Product used for unknown indication
     Dosage: 4 MILLIGRAM, QD(DAILY)
     Route: 065
  5. RISPERIDONE [Suspect]
     Active Substance: RISPERIDONE
     Indication: Intellectual disability
  6. CLONAZEPAM [Suspect]
     Active Substance: CLONAZEPAM
     Indication: Product used for unknown indication
     Dosage: 4 MILLIGRAM, QD, DAILY
     Route: 065
  7. CLONAZEPAM [Suspect]
     Active Substance: CLONAZEPAM
     Indication: Intellectual disability
  8. VALPROIC ACID [Suspect]
     Active Substance: VALPROIC ACID
     Indication: Product used for unknown indication
     Dosage: 1000 MILLIGRAM, QD
     Route: 065
  9. VALPROIC ACID [Suspect]
     Active Substance: VALPROIC ACID
     Indication: Intellectual disability
  10. CARBAMAZEPINE [Suspect]
     Active Substance: CARBAMAZEPINE
     Indication: Product used for unknown indication
     Dosage: 400 MILLIGRAM, QD (400 MG, DAILY)
     Route: 065
  11. CARBAMAZEPINE [Suspect]
     Active Substance: CARBAMAZEPINE
     Indication: Intellectual disability
  12. CHLORPROMAZINE [Suspect]
     Active Substance: CHLORPROMAZINE
     Indication: Product used for unknown indication
     Dosage: 200 MG, DAILY
     Route: 065
  13. CHLORPROMAZINE [Suspect]
     Active Substance: CHLORPROMAZINE
     Indication: Intellectual disability
  14. ARIPIPRAZOLE [Suspect]
     Active Substance: ARIPIPRAZOLE
     Indication: Product used for unknown indication
     Dosage: 30 MILLIGRAM, QD ,DAILY
     Route: 065
  15. ARIPIPRAZOLE [Suspect]
     Active Substance: ARIPIPRAZOLE
     Indication: Intellectual disability
  16. QUETIAPINE [Suspect]
     Active Substance: QUETIAPINE
     Indication: Product used for unknown indication
     Dosage: 600 MG, DAILY
     Route: 065
  17. QUETIAPINE [Suspect]
     Active Substance: QUETIAPINE
     Indication: Intellectual disability
  18. METHYLPHENIDATE [Suspect]
     Active Substance: METHYLPHENIDATE
     Indication: Product used for unknown indication
     Dosage: 27 MG,QD, DAILY
     Route: 065
  19. METHYLPHENIDATE [Suspect]
     Active Substance: METHYLPHENIDATE
     Indication: Intellectual disability
  20. BIPERIDEN [Suspect]
     Active Substance: BIPERIDEN
     Indication: Product used for unknown indication
     Dosage: 6 MG, DAILY
     Route: 065
  21. BIPERIDEN [Suspect]
     Active Substance: BIPERIDEN
     Indication: Intellectual disability

REACTIONS (2)
  - Therapy non-responder [Unknown]
  - Treatment failure [Unknown]
